FAERS Safety Report 5869326-9 (Version None)
Quarter: 2008Q3

REPORT INFORMATION
  Report Type: 
  Country: None (occurrence: None)
  Receive Date: 20080828
  Receipt Date: 20080815
  Transmission Date: 20090109
  Serious: Yes (Hospitalization)
  Sender: FDA-Public Use
  Company Number: IDR-00169

PATIENT
  Age: 81 Year
  Sex: Female
  Weight: 51 kg

DRUGS (6)
  1. INDERAL LA [Suspect]
     Indication: HYPERTENSION
     Dosage: 120 MG/DAY, ORAL
     Route: 048
     Dates: end: 20070718
  2. INDERAL LA [Suspect]
     Indication: PALPITATIONS
     Dosage: 120 MG/DAY, ORAL
     Route: 048
     Dates: end: 20070718
  3. NICARDIPINE HYDROCHLORIDE [Suspect]
     Indication: HYPERTENSION
  4. NICARDIPINE HYDROCHLORIDE [Suspect]
     Indication: PALPITATIONS
  5. DIGOXIN [Suspect]
     Indication: HYPERTENSION
  6. DIGOXIN [Suspect]
     Indication: PALPITATIONS

REACTIONS (7)
  - ABDOMINAL PAIN [None]
  - COLITIS ISCHAEMIC [None]
  - COLONIC POLYP [None]
  - HAEMOGLOBIN DECREASED [None]
  - OCCULT BLOOD POSITIVE [None]
  - RECTAL HAEMORRHAGE [None]
  - WHITE BLOOD CELL COUNT INCREASED [None]
